FAERS Safety Report 10182720 (Version 1)
Quarter: 2014Q2

REPORT INFORMATION
  Report Type: Spontaneous
  Country: US (occurrence: None)
  Receive Date: 20140516
  Receipt Date: 20140516
  Transmission Date: 20141212
  Serious: Yes (Hospitalization)
  Sender: FDA-Public Use
  Company Number: UNT-2014-000101

PATIENT
  Sex: Female

DRUGS (2)
  1. REMODULIN [Suspect]
     Indication: COR PULMONALE CHRONIC
     Route: 042
  2. REMODULIN [Suspect]
     Indication: COR PULMONALE CHRONIC
     Route: 042

REACTIONS (1)
  - Cardiac arrest [None]
